FAERS Safety Report 19460044 (Version 2)
Quarter: 2021Q3

REPORT INFORMATION
  Report Type: Spontaneous
  Country: TW (occurrence: TW)
  Receive Date: 20210625
  Receipt Date: 20210712
  Transmission Date: 20211014
  Serious: Yes (Other)
  Sender: FDA-Public Use
  Company Number: TW-SUN PHARMACEUTICAL INDUSTRIES LTD-2021RR-301885

PATIENT
  Age: 43 Year
  Sex: Male

DRUGS (4)
  1. NAPOSIN [Suspect]
     Active Substance: NAPROXEN
     Indication: PEMPHIGOID
     Dosage: UNK
     Route: 065
  2. DONISON [Suspect]
     Active Substance: PREDNISOLONE ACETATE
     Dosage: 30 MILLIGRAM, DAILY (0.5 MG/KG/DAY)
     Route: 065
  3. DONISON [Suspect]
     Active Substance: PREDNISOLONE ACETATE
     Indication: PEMPHIGOID
     Dosage: UNK
     Route: 065
  4. CURAM [Suspect]
     Active Substance: AMOXICILLIN\CLAVULANATE POTASSIUM
     Indication: PEMPHIGOID
     Dosage: UNK
     Route: 065

REACTIONS (2)
  - Drug ineffective [Unknown]
  - Hepatitis B [Recovering/Resolving]
